FAERS Safety Report 9235218 (Version 3)
Quarter: 2013Q3

REPORT INFORMATION
  Report Type: Spontaneous
  Country: US (occurrence: US)
  Receive Date: 20130417
  Receipt Date: 20130715
  Transmission Date: 20140515
  Serious: Yes (Hospitalization)
  Sender: FDA-Public Use
  Company Number: US-BIOGENIDEC-2013BI033499

PATIENT
  Age: 61 Year
  Sex: Female

DRUGS (2)
  1. AVONEX [Suspect]
     Indication: MULTIPLE SCLEROSIS
     Route: 030
     Dates: start: 20070901
  2. AVONEX [Suspect]
     Indication: MULTIPLE SCLEROSIS
     Route: 030
     Dates: start: 20130419

REACTIONS (5)
  - Gastric disorder [Recovered/Resolved]
  - Neoplasm malignant [Recovered/Resolved]
  - Post gastric surgery syndrome [Unknown]
  - Influenza like illness [Unknown]
  - Feeling abnormal [Unknown]
